FAERS Safety Report 25824365 (Version 4)
Quarter: 2025Q4

REPORT INFORMATION
  Report Type: Spontaneous
  Country: US (occurrence: US)
  Receive Date: 20250919
  Receipt Date: 20251115
  Transmission Date: 20260117
  Serious: No
  Sender: SANOFI AVENTIS
  Company Number: US-SA-2025SA279995

PATIENT
  Age: 38 Year
  Sex: Male

DRUGS (2)
  1. LANTUS SOLOSTAR [Suspect]
     Active Substance: INSULIN GLARGINE
     Indication: Type 1 diabetes mellitus
     Dosage: 42 IU, QD
     Dates: start: 2007
  2. HUMALOG [Concomitant]
     Active Substance: INSULIN LISPRO
     Dosage: UNK
     Dates: start: 2007

REACTIONS (4)
  - Eye irritation [Unknown]
  - Accidental exposure to product [Unknown]
  - Exposure via eye contact [Unknown]
  - Exposure via skin contact [Unknown]
